FAERS Safety Report 19660126 (Version 1)
Quarter: 2021Q3

REPORT INFORMATION
  Report Type: Spontaneous
  Country: ES (occurrence: ES)
  Receive Date: 20210805
  Receipt Date: 20210805
  Transmission Date: 20211014
  Serious: Yes (Other)
  Sender: FDA-Public Use
  Company Number: NVSC2021ES168314

PATIENT
  Age: 58 Year
  Sex: Female

DRUGS (5)
  1. HYRIMOZ [Suspect]
     Active Substance: ADALIMUMAB-ADAZ
     Dosage: UNK
     Route: 065
  2. OSTEOPOR [Concomitant]
     Indication: OSTEOPOROSIS
     Dosage: UNK (1 PASTILLA AL DIA)
     Route: 065
     Dates: start: 20200708
  3. HYRIMOZ [Suspect]
     Active Substance: ADALIMUMAB-ADAZ
     Indication: PRODUCT USED FOR UNKNOWN INDICATION
     Dosage: UNK
     Route: 058
     Dates: start: 20210402, end: 20210722
  4. FOSAVANCE [Concomitant]
     Active Substance: ALENDRONATE SODIUM\CHOLECALCIFEROL
     Indication: OSTEOPOROSIS
     Dosage: UNK (70/2.800 MG/UL, 1 PASTILLA SEMANAL)
     Route: 065
     Dates: start: 20200708
  5. OPTOVITE B12 [Concomitant]
     Active Substance: CYANOCOBALAMIN
     Indication: MALABSORPTION
     Dosage: UNK (1 INYECCION MENSUAL)
     Route: 065
     Dates: start: 20090501

REACTIONS (1)
  - Palmoplantar pustulosis [Recovering/Resolving]

NARRATIVE: CASE EVENT DATE: 20210623
